FAERS Safety Report 6839112-1 (Version None)
Quarter: 2010Q3

REPORT INFORMATION
  Report Type: 
  Country: None (occurrence: None)
  Receive Date: 20100714
  Receipt Date: 20100329
  Transmission Date: 20110219
  Serious: Yes (Hospitalization, Other)
  Sender: FDA-Public Use
  Company Number: US-ASTRAZENECA-2008UW14993

PATIENT
  Age: 421 Month
  Sex: Male
  Weight: 122.9 kg

DRUGS (22)
  1. SEROQUEL [Suspect]
     Indication: SLEEP DISORDER
     Route: 048
     Dates: start: 20041001
  2. SEROQUEL [Suspect]
     Route: 048
  3. SEROQUEL [Suspect]
     Route: 048
     Dates: start: 20050211
  4. LEVAQUIN [Concomitant]
  5. PROTONIX [Concomitant]
  6. AMBIEN [Concomitant]
     Dates: start: 20050211
  7. AVAPRO [Concomitant]
  8. FLOMAX [Concomitant]
  9. CYMBALTA [Concomitant]
  10. MIRAPEX [Concomitant]
  11. AMITRIPTYLINE HYDROCHLORIDE [Concomitant]
     Dates: start: 20050211
  12. HYDROCHLOROTHIAZIDE [Concomitant]
     Dates: start: 20050211
  13. CELEBREX [Concomitant]
     Dates: start: 20050223
  14. MIRTAZAPINE [Concomitant]
     Dates: start: 20050309
  15. OXYCODONE HCL AND ACETAMINOPHEN [Concomitant]
     Dosage: 5-325 MG
     Dates: start: 20050512
  16. LUNESTA [Concomitant]
     Dates: start: 20050513
  17. CLONAZEPAM [Concomitant]
     Dates: start: 20050628
  18. CHERATUSSIN AC [Concomitant]
     Dates: start: 20050705
  19. ZYPREXA [Concomitant]
     Dates: start: 20050714
  20. DOXYCYCLINE MHY [Concomitant]
     Dates: start: 20050812
  21. GEODON [Concomitant]
     Dates: start: 20050819
  22. MOBIC [Concomitant]
     Dates: start: 20050819

REACTIONS (6)
  - ABDOMINAL PAIN LOWER [None]
  - BACK PAIN [None]
  - INFECTION [None]
  - TARDIVE DYSKINESIA [None]
  - TYPE 2 DIABETES MELLITUS [None]
  - WEIGHT INCREASED [None]
